FAERS Safety Report 16115272 (Version 1)
Quarter: 2019Q1

REPORT INFORMATION
  Report Type: Spontaneous
  Country: US (occurrence: US)
  Receive Date: 20190325
  Receipt Date: 20190325
  Transmission Date: 20190418
  Serious: Yes (Other)
  Sender: FDA-Public Use
  Company Number: US-PFIZER INC-2019122978

PATIENT
  Age: 73 Year
  Sex: Female

DRUGS (3)
  1. MIDOSTAURIN [Suspect]
     Active Substance: MIDOSTAURIN
     Indication: ACUTE MYELOID LEUKAEMIA
     Dosage: 50 MG, UNK, (ON DAYS 8-21) INDUCTION CHEMOTHERAPY
  2. CYTARABINE. [Suspect]
     Active Substance: CYTARABINE
     Indication: ACUTE MYELOID LEUKAEMIA
     Dosage: 50 MG/M2, CYCLIC, (ON DAYS 1-7) INDUCTION CHEMOTHERAPY
  3. DAUNORUBICIN [Suspect]
     Active Substance: DAUNORUBICIN
     Indication: ACUTE MYELOID LEUKAEMIA
     Dosage: 60 MG/M2, CYCLIC, (ON DAYS 1-3) INDUCTION CHEMOTHERAPY

REACTIONS (1)
  - Neutropenic colitis [Recovering/Resolving]
